FAERS Safety Report 20690877 (Version 3)
Quarter: 2022Q3

REPORT INFORMATION
  Report Type: Spontaneous
  Country: CN (occurrence: CN)
  Receive Date: 20220408
  Receipt Date: 20220722
  Transmission Date: 20221027
  Serious: Yes (Hospitalization, Other)
  Sender: FDA-Public Use
  Company Number: CN-AMGEN-CHNSP2021210295

PATIENT
  Age: 55 Year
  Sex: Male

DRUGS (2)
  1. BLINCYTO [Suspect]
     Active Substance: BLINATUMOMAB
     Indication: B precursor type acute leukaemia
     Dosage: UNK
     Route: 042
     Dates: start: 20210830, end: 20220101
  2. DASATINIB [Concomitant]
     Active Substance: DASATINIB
     Dosage: UNK

REACTIONS (2)
  - Immune-mediated enterocolitis [Recovering/Resolving]
  - Cytokine release syndrome [Unknown]

NARRATIVE: CASE EVENT DATE: 20220101
